FAERS Safety Report 10911820 (Version 1)
Quarter: 2015Q1

REPORT INFORMATION
  Report Type: Spontaneous
  Country: US (occurrence: None)
  Receive Date: 20150128
  Receipt Date: 20150128
  Transmission Date: 20150721
  Serious: No
  Sender: FDA-Public Use
  Company Number: 2014TUS011332

PATIENT
  Age: 62 Year
  Sex: Female
  Weight: 105.2 kg

DRUGS (8)
  1. ALTACE [Concomitant]
     Active Substance: RAMIPRIL
  2. SIMVASTATIN. [Concomitant]
     Active Substance: SIMVASTATIN
  3. BRINTELLIX [Suspect]
     Active Substance: VORTIOXETINE HYDROBROMIDE
     Indication: DEPRESSION
     Route: 048
     Dates: start: 201410, end: 201410
  4. OMEPRAZOLE. [Concomitant]
     Active Substance: OMEPRAZOLE
  5. RESTASIS (CICLOSPORIN) [Concomitant]
  6. MULTIVITAMIN  /00097801/ (ASCORBIC ACID, CALCIUM PANTOTHENATE, ERGOCALCIFEROL, NICOTINAMIDE, PYRIDOXINE HYDROCHLORIDE, RETINOL, RIBOFLAVIN, THIAMINE HYDROCHLORIDE) [Concomitant]
  7. XANAX [Concomitant]
     Active Substance: ALPRAZOLAM
  8. CHOLESTYRAMINE. [Concomitant]
     Active Substance: CHOLESTYRAMINE

REACTIONS (9)
  - Anxiety [None]
  - Restlessness [None]
  - Insomnia [None]
  - Palpitations [None]
  - Hyperhidrosis [None]
  - Tachyphrenia [None]
  - Hunger [None]
  - Agitation [None]
  - Panic attack [None]

NARRATIVE: CASE EVENT DATE: 20141108
